FAERS Safety Report 4621590-X (Version None)
Quarter: 2005Q1

REPORT INFORMATION
  Report Type: 
  Country: None (occurrence: None)
  Receive Date: 20050329
  Receipt Date: 20050315
  Transmission Date: 20050727
  Serious: Yes (Other)
  Sender: FDA-Public Use
  Company Number: 2005045227

PATIENT
  Age: 71 Year
  Sex: Female
  Weight: 135 kg

DRUGS (3)
  1. DETROL LA [Suspect]
     Indication: MICTURITION URGENCY
     Dosage: 2 MG(2 MG, QD), ORAL
     Route: 048
     Dates: start: 20030101
  2. ESTRADIOL [Interacting]
  3. BROMAZEPAM (BROMAZEPAM) [Concomitant]

REACTIONS (3)
  - DRUG INEFFECTIVE [None]
  - MICTURITION URGENCY [None]
  - SINUS POLYP [None]
